FAERS Safety Report 16374562 (Version 2)
Quarter: 2019Q2

REPORT INFORMATION
  Report Type: Spontaneous
  Country: US (occurrence: US)
  Receive Date: 20190530
  Receipt Date: 20190531
  Transmission Date: 20190711
  Serious: Yes (Other)
  Sender: FDA-Public Use
  Company Number: US-CELGENEUS-USA-20190509925

PATIENT
  Age: 70 Year
  Sex: Female

DRUGS (8)
  1. OTEZLA [Suspect]
     Active Substance: APREMILAST
     Dosage: 60 MILLIGRAM
     Route: 048
     Dates: start: 201812
  2. VITAMIN D3 [Concomitant]
     Active Substance: CHOLECALCIFEROL
     Indication: SUPPLEMENTATION THERAPY
     Route: 065
  3. VITAMIN E [Concomitant]
     Active Substance: .ALPHA.-TOCOPHEROL
     Indication: SUPPLEMENTATION THERAPY
     Route: 065
  4. PREDNISONE. [Concomitant]
     Active Substance: PREDNISONE
     Indication: UPPER RESPIRATORY TRACT INFECTION
     Route: 065
  5. VALSARTAN. [Concomitant]
     Active Substance: VALSARTAN
     Indication: HYPERTENSION
     Route: 065
     Dates: end: 201903
  6. BABY ASPIRIN [Concomitant]
     Active Substance: ASPIRIN
     Indication: HYPERTENSION
     Route: 065
     Dates: end: 201903
  7. ZITHROMAX [Concomitant]
     Active Substance: AZITHROMYCIN DIHYDRATE
     Indication: UPPER RESPIRATORY TRACT INFECTION
     Route: 065
  8. OTEZLA [Suspect]
     Active Substance: APREMILAST
     Indication: PSORIASIS
     Dosage: 60 MILLIGRAM
     Route: 048
     Dates: start: 201806, end: 201811

REACTIONS (2)
  - Hypotension [Unknown]
  - Hypersensitivity [Unknown]

NARRATIVE: CASE EVENT DATE: 201901
